FAERS Safety Report 10748699 (Version 1)
Quarter: 2015Q1

REPORT INFORMATION
  Report Type: Spontaneous
  Country: US (occurrence: US)
  Receive Date: 20150129
  Receipt Date: 20150129
  Transmission Date: 20150721
  Serious: No
  Sender: FDA-Public Use
  Company Number: US-009507513-1501USA011037

PATIENT

DRUGS (1)
  1. GANIRELIX ACETATE INJECTION [Suspect]
     Active Substance: GANIRELIX ACETATE
     Dosage: 250 MICROGRAM, ONCE A DAY
     Dates: start: 20150126

REACTIONS (2)
  - No adverse event [Unknown]
  - Needle issue [Unknown]

NARRATIVE: CASE EVENT DATE: 20150126
